FAERS Safety Report 10238575 (Version 1)
Quarter: 2014Q2

REPORT INFORMATION
  Report Type: Spontaneous
  Country: US (occurrence: US)
  Receive Date: 20140616
  Receipt Date: 20140616
  Transmission Date: 20141212
  Serious: Yes (Other)
  Sender: FDA-Public Use
  Company Number: US-PFIZER INC-2014161555

PATIENT
  Age: 78 Year
  Sex: Female
  Weight: 65.31 kg

DRUGS (1)
  1. LEVOTHYROXINE SODIUM [Suspect]
     Indication: THYROID DISORDER
     Dosage: UNK
     Dates: start: 2013

REACTIONS (5)
  - Thyroid disorder [Unknown]
  - Goitre [Unknown]
  - Aphonia [Unknown]
  - Pain [Unknown]
  - Asthenia [Unknown]
